FAERS Safety Report 19932348 (Version 1)
Quarter: 2021Q4

REPORT INFORMATION
  Report Type: Spontaneous
  Country: US (occurrence: US)
  Receive Date: 20211007
  Receipt Date: 20211007
  Transmission Date: 20220303
  Serious: No
  Sender: FDA-Public Use
  Company Number: None

PATIENT
  Age: 73 Year
  Sex: Male

DRUGS (2)
  1. JAKAFI [Suspect]
     Active Substance: RUXOLITINIB
     Route: 048
  2. JAKAFI [Concomitant]
     Active Substance: RUXOLITINIB
     Dates: start: 20211004

REACTIONS (2)
  - Pain [None]
  - Arthralgia [None]

NARRATIVE: CASE EVENT DATE: 20211007
